APPROVED DRUG PRODUCT: CYCLOBENZAPRINE HYDROCHLORIDE
Active Ingredient: CYCLOBENZAPRINE HYDROCHLORIDE
Strength: 10MG
Dosage Form/Route: TABLET;ORAL
Application: A071611 | Product #001 | TE Code: AB
Applicant: ACTAVIS LABORATORIES FL INC
Approved: May 3, 1989 | RLD: No | RS: No | Type: RX